FAERS Safety Report 24926742 (Version 1)
Quarter: 2025Q1

REPORT INFORMATION
  Report Type: Spontaneous
  Country: HU (occurrence: HU)
  Receive Date: 20250205
  Receipt Date: 20250205
  Transmission Date: 20250408
  Serious: Yes (Other)
  Sender: ROCHE
  Company Number: HU-ROCHE-10000194102

PATIENT

DRUGS (1)
  1. AVASTIN [Suspect]
     Active Substance: BEVACIZUMAB
     Indication: Astrocytoma malignant
     Route: 065

REACTIONS (3)
  - Brain oedema [Unknown]
  - Hemiparesis [Unknown]
  - Alopecia [Unknown]
